FAERS Safety Report 8590170-6 (Version None)
Quarter: 2012Q3

REPORT INFORMATION
  Report Type: 
  Country: None (occurrence: None)
  Receive Date: 20120813
  Receipt Date: 20120808
  Transmission Date: 20120928
  Serious: Yes (Other)
  Sender: FDA-Public Use
  Company Number: CO-PFIZER INC-2012195805

PATIENT
  Age: 89 Year
  Sex: Male

DRUGS (1)
  1. CARDURA [Suspect]
     Indication: PROSTATITIS
     Dosage: 4 MG, 1X/DAY
     Route: 048
     Dates: start: 19980101

REACTIONS (1)
  - HYPOACUSIS [None]
